FAERS Safety Report 5226880-8 (Version None)
Quarter: 2007Q1

REPORT INFORMATION
  Report Type: 
  Country: None (occurrence: None)
  Receive Date: 20070202
  Receipt Date: 20070122
  Transmission Date: 20070707
  Serious: Yes (Other)
  Sender: FDA-Public Use
  Company Number: DE-JNJFOC-20070102790

PATIENT
  Age: 37 Year
  Sex: Male
  Weight: 115 kg

DRUGS (3)
  1. RISPERDAL CONSTA [Suspect]
     Route: 030
  2. RISPERDAL CONSTA [Suspect]
     Route: 030
  3. RISPERDAL CONSTA [Suspect]
     Indication: SCHIZOPHRENIA
     Dosage: SEVERAL YEARS AGO
     Route: 030

REACTIONS (5)
  - BLOOD CHOLESTEROL INCREASED [None]
  - BLOOD GLUCOSE INCREASED [None]
  - HYPERTENSION [None]
  - HYPERTRIGLYCERIDAEMIA [None]
  - WEIGHT INCREASED [None]
